FAERS Safety Report 13965980 (Version 2)
Quarter: 2017Q3

REPORT INFORMATION
  Report Type: Spontaneous
  Country: JP (occurrence: JP)
  Receive Date: 20170913
  Receipt Date: 20170928
  Transmission Date: 20171128
  Serious: Yes (Hospitalization)
  Sender: FDA-Public Use
  Company Number: JP-TEVA-805149ROM

PATIENT
  Age: 77 Year
  Sex: Female
  Weight: 60 kg

DRUGS (19)
  1. TRIAZOLAM. [Concomitant]
     Active Substance: TRIAZOLAM
     Dosage: 0.25MG/DAY
     Route: 065
  2. REMIFENTANIL [Concomitant]
     Active Substance: REMIFENTANIL
     Indication: ANAESTHESIA
     Dosage: 0.2 MICROG/KG/MIN
     Route: 042
  3. REMIFENTANIL [Concomitant]
     Active Substance: REMIFENTANIL
     Indication: ANAESTHESIA
     Dosage: 0.1MICROG/KG/MIN
     Route: 065
  4. PAROXETINE. [Suspect]
     Active Substance: PAROXETINE
     Indication: DEPRESSION
     Dosage: 20MG/DAY
     Route: 065
  5. CARVEDILOL. [Concomitant]
     Active Substance: CARVEDILOL
     Dosage: 10MG/DAY
     Route: 065
  6. PROPOFOL. [Concomitant]
     Active Substance: PROPOFOL
     Indication: ANAESTHESIA
     Dosage: 80MG
     Route: 042
  7. CANDESARTAN CILEXETIL. [Concomitant]
     Active Substance: CANDESARTAN CILEXETIL
     Dosage: 8MG/DAY
     Route: 065
  8. MILNACIPRAN [Suspect]
     Active Substance: MILNACIPRAN
     Indication: DEPRESSION
     Dosage: 100MG/DAY
     Route: 065
  9. NICORANDIL [Concomitant]
     Active Substance: NICORANDIL
     Dosage: 5MG/DAY
     Route: 065
  10. MIDAZOLAM [Concomitant]
     Active Substance: MIDAZOLAM HYDROCHLORIDE
     Indication: ANAESTHESIA
     Dosage: 6MG SINGLE DOSE
     Route: 065
  11. BENIDIPINE [Concomitant]
     Active Substance: BENIDIPINE
     Dosage: 4MG/DAY
     Route: 065
  12. ZOLPIDEM [Concomitant]
     Active Substance: ZOLPIDEM\ZOLPIDEM TARTRATE
     Dosage: 5MG/DAY
     Route: 065
  13. ALPRAZOLAM. [Concomitant]
     Active Substance: ALPRAZOLAM
     Dosage: 0.4MG/DAY
     Route: 065
  14. SIMVASTATIN. [Concomitant]
     Active Substance: SIMVASTATIN
     Dosage: 5MG/DAY
     Route: 065
  15. SEVOFLURANE. [Concomitant]
     Active Substance: SEVOFLURANE
     Indication: ANAESTHESIA
     Dosage: 1%
     Route: 065
  16. IMIPRAMINE [Interacting]
     Active Substance: IMIPRAMINE
     Indication: DEPRESSION
     Dosage: 60MG/DAY REDUCED TO 30MG/DAY, 3 DAYS BEFORE SECOND SURGERY
     Route: 065
  17. IMIPRAMINE [Interacting]
     Active Substance: IMIPRAMINE
     Indication: DEPRESSION
     Dosage: 30MG/DAY
     Route: 065
  18. ROCURONIUM BROMIDE. [Concomitant]
     Active Substance: ROCURONIUM BROMIDE
     Dosage: 40MG
     Route: 065
  19. SEVOFLURANE. [Concomitant]
     Active Substance: SEVOFLURANE
     Indication: ANAESTHESIA
     Dosage: 5% SLOW INDUCTION
     Route: 065

REACTIONS (2)
  - Hypotension [Recovering/Resolving]
  - Drug interaction [Recovering/Resolving]
